FAERS Safety Report 13932970 (Version 2)
Quarter: 2017Q4

REPORT INFORMATION
  Report Type: Spontaneous
  Country: JP (occurrence: JP)
  Receive Date: 20170904
  Receipt Date: 20171108
  Transmission Date: 20180320
  Serious: Yes (Hospitalization)
  Sender: FDA-Public Use
  Company Number: JP-JNJFOC-20170901820

PATIENT
  Sex: Male

DRUGS (2)
  1. ZYTIGA [Suspect]
     Active Substance: ABIRATERONE ACETATE
     Indication: PRODUCT USED FOR UNKNOWN INDICATION
     Route: 048
  2. PREDONINE [Concomitant]
     Active Substance: PREDNISOLONE
     Route: 065

REACTIONS (1)
  - Hospitalisation [Unknown]
